FAERS Safety Report 8396387-8 (Version None)
Quarter: 2012Q1

REPORT INFORMATION
  Report Type: 
  Country: None (occurrence: None)
  Receive Date: 20120323
  Receipt Date: 20110314
  Transmission Date: 20120608
  Serious: Yes (Hospitalization)
  Sender: FDA-Public Use
  Company Number: 163-21880-11031672

PATIENT
  Age: 77 Year
  Sex: Female

DRUGS (1)
  1. REVLIMID [Suspect]
     Indication: MULTIPLE MYELOMA
     Dosage: 25 MG, QD D1-21/28D, PO
     Route: 048
     Dates: start: 20101213, end: 20110124

REACTIONS (3)
  - RENAL FAILURE ACUTE [None]
  - SEPTIC SHOCK [None]
  - HYPOTENSION [None]
